FAERS Safety Report 10076485 (Version 1)
Quarter: 2014Q2

REPORT INFORMATION
  Report Type: Spontaneous
  Country: US (occurrence: US)
  Receive Date: 20140414
  Receipt Date: 20140414
  Transmission Date: 20141212
  Serious: No
  Sender: FDA-Public Use
  Company Number: US-BAYER-2014-054512

PATIENT
  Age: 84 Year
  Sex: Male
  Weight: 98.87 kg

DRUGS (1)
  1. ALEVE CAPLET [Suspect]
     Indication: INFLAMMATION
     Dosage: 1 DF, BID
     Route: 048
     Dates: start: 20140406, end: 20140409

REACTIONS (3)
  - Expired product administered [None]
  - Intentional product misuse [None]
  - Joint swelling [Not Recovered/Not Resolved]
